APPROVED DRUG PRODUCT: LEVETIRACETAM
Active Ingredient: LEVETIRACETAM
Strength: 750MG
Dosage Form/Route: TABLET;ORAL
Application: A078106 | Product #003 | TE Code: AB
Applicant: PRINSTON PHARMACEUTICAL INC
Approved: Feb 10, 2009 | RLD: No | RS: No | Type: RX